FAERS Safety Report 8909481 (Version 1)
Quarter: 2012Q4

REPORT INFORMATION
  Report Type: 
  Country: TH (occurrence: TH)
  Receive Date: 20121115
  Receipt Date: 20121115
  Transmission Date: 20130627
  Serious: Yes (Other)
  Sender: FDA-Public Use
  Company Number: TH-JNJFOC-20121105897

PATIENT

DRUGS (1)
  1. DOXORUBICIN [Suspect]
     Indication: NEOPLASM MALIGNANT
     Dosage: more than or equal to 300 mg/m2
     Route: 042

REACTIONS (2)
  - Cardiotoxicity [Unknown]
  - Blood creatine phosphokinase MB increased [Unknown]
